FAERS Safety Report 23592924 (Version 7)
Quarter: 2024Q3

REPORT INFORMATION
  Report Type: Spontaneous
  Country: US (occurrence: US)
  Receive Date: 20240304
  Receipt Date: 20240701
  Transmission Date: 20241016
  Serious: No
  Sender: PFIZER
  Company Number: US-PFIZER INC-PV202400029559

PATIENT
  Age: 73 Year
  Sex: Female

DRUGS (2)
  1. IBRANCE [Suspect]
     Active Substance: PALBOCICLIB
     Dosage: 100 MG
     Dates: end: 20240415
  2. EXEMESTANE [Concomitant]
     Active Substance: EXEMESTANE

REACTIONS (18)
  - Nasopharyngitis [Recovered/Resolved]
  - Cough [Not Recovered/Not Resolved]
  - Upper-airway cough syndrome [Not Recovered/Not Resolved]
  - Insomnia [Unknown]
  - Fatigue [Unknown]
  - Decreased appetite [Unknown]
  - Blood test abnormal [Unknown]
  - Oropharyngeal pain [Unknown]
  - Diarrhoea [Unknown]
  - Nasopharyngitis [Unknown]
  - Constipation [Unknown]
  - Headache [Unknown]
  - Alopecia [Unknown]
  - Lacrimation increased [Unknown]
  - Oral pain [Unknown]
  - Genital lesion [Unknown]
  - Haemorrhoids [Unknown]
  - Lung disorder [Unknown]

NARRATIVE: CASE EVENT DATE: 20240229
